FAERS Safety Report 17439323 (Version 1)
Quarter: 2020Q1

REPORT INFORMATION
  Report Type: Report from Study
  Country: US (occurrence: US)
  Receive Date: 20200220
  Receipt Date: 20200220
  Transmission Date: 20200409
  Serious: No
  Sender: FDA-Public Use
  Company Number: NVSC2020US047227

PATIENT
  Age: 59 Year
  Sex: Male

DRUGS (1)
  1. BEOVU [Suspect]
     Active Substance: BROLUCIZUMAB-DBLL
     Indication: NEOVASCULAR AGE-RELATED MACULAR DEGENERATION
     Dosage: 1 DF
     Route: 047
     Dates: start: 20191202

REACTIONS (2)
  - Vitreous floaters [Unknown]
  - Eye pain [Unknown]

NARRATIVE: CASE EVENT DATE: 20200218
